FAERS Safety Report 7378243-7 (Version None)
Quarter: 2011Q1

REPORT INFORMATION
  Report Type: 
  Country: None (occurrence: None)
  Receive Date: 20110328
  Receipt Date: 20110324
  Transmission Date: 20110831
  Serious: Yes (Death, Life-Threatening, Hospitalization)
  Sender: FDA-Public Use
  Company Number: B0704092A

PATIENT
  Sex: Male
  Weight: 43 kg

DRUGS (10)
  1. PRIDOL [Suspect]
     Dosage: 87MG PER DAY
     Route: 042
     Dates: start: 20080925, end: 20081025
  2. TACROLIMUS HYDRATE [Concomitant]
     Indication: IMMUNOSUPPRESSION
     Dosage: 1MG PER DAY
     Route: 065
     Dates: start: 20080929, end: 20091030
  3. METHOTREXATE [Concomitant]
     Indication: IMMUNOSUPPRESSION
     Dosage: 20MG PER DAY
     Route: 065
     Dates: start: 20081001, end: 20081011
  4. VICCLOX [Concomitant]
     Dosage: 1000MG PER DAY
     Route: 042
     Dates: start: 20080923, end: 20081102
  5. IMMUNE GLOBULIN INTRAVENOUS (HUMAN) [Concomitant]
     Dosage: 7.5G PER DAY
     Route: 042
     Dates: start: 20080916, end: 20081112
  6. FLUDARA [Suspect]
     Indication: ALLOGENIC BONE MARROW TRANSPLANTATION THERAPY
     Dosage: 40MG PER DAY
     Dates: start: 20080920, end: 20080924
  7. GRAN [Concomitant]
     Dates: start: 20081005, end: 20081019
  8. FRAGMIN [Concomitant]
     Dosage: 3.5IU3 PER DAY
     Route: 042
     Dates: start: 20080919, end: 20081113
  9. LYMPHOGLOBULINE [Suspect]
     Indication: ALLOGENIC BONE MARROW TRANSPLANTATION THERAPY
     Dosage: 640MG PER DAY
     Dates: start: 20080925, end: 20080928
  10. ALKERAN [Suspect]
     Indication: ALLOGENIC BONE MARROW TRANSPLANTATION THERAPY
     Dosage: 100MG PER DAY
     Route: 042
     Dates: start: 20080925, end: 20080926

REACTIONS (6)
  - ASPARTATE AMINOTRANSFERASE ABNORMAL [None]
  - HEPATIC FAILURE [None]
  - PEPTIC ULCER [None]
  - PEPTIC ULCER HAEMORRHAGE [None]
  - DIARRHOEA [None]
  - RASH [None]
